FAERS Safety Report 12713412 (Version 1)
Quarter: 2016Q3

REPORT INFORMATION
  Report Type: Spontaneous
  Country: FI (occurrence: FI)
  Receive Date: 20160903
  Receipt Date: 20160903
  Transmission Date: 20161109
  Serious: Yes (Other)
  Sender: FDA-Public Use
  Company Number: FI-BAXTER-2016BAX045211

PATIENT
  Age: 57 Year
  Sex: Female

DRUGS (1)
  1. NATRIUMKLORID BAXTER 9 MG/ML INFUUSIONESTE, LIUOS [Suspect]
     Active Substance: SODIUM CHLORIDE
     Indication: DEVICE PRIMING
     Dosage: PRIMING FOR HEMODIALYSIS TREATMENT
     Route: 010

REACTIONS (1)
  - Haemorrhage [Unknown]
